FAERS Safety Report 22607391 (Version 1)
Quarter: 2023Q2

REPORT INFORMATION
  Report Type: Spontaneous
  Country: JP (occurrence: JP)
  Receive Date: 20230616
  Receipt Date: 20230616
  Transmission Date: 20230721
  Serious: Yes (Hospitalization, Other)
  Sender: FDA-Public Use
  Company Number: JP-TAKEDA-2023TJP006734

PATIENT
  Age: 49 Year
  Sex: Male

DRUGS (1)
  1. ALUNBRIG [Suspect]
     Active Substance: BRIGATINIB
     Indication: Non-small cell lung cancer
     Dosage: 180 MILLIGRAM, QD
     Route: 048
     Dates: start: 20230524, end: 20230525

REACTIONS (3)
  - Pneumonitis [Recovered/Resolved]
  - Pulmonary alveolar haemorrhage [Unknown]
  - Overdose [Unknown]

NARRATIVE: CASE EVENT DATE: 20230524
